FAERS Safety Report 5041830-5 (Version None)
Quarter: 2006Q2

REPORT INFORMATION
  Report Type: 
  Country: None (occurrence: None)
  Receive Date: 20060627
  Receipt Date: 20060615
  Transmission Date: 20061013
  Serious: Yes (Hospitalization)
  Sender: FDA-Public Use
  Company Number: 2006BI006177

PATIENT
  Age: 53 Year
  Sex: Female

DRUGS (8)
  1. AVONEX [Suspect]
     Indication: MULTIPLE SCLEROSIS
     Dosage: 30 UG; QW; IM
     Route: 030
     Dates: start: 20050914, end: 20060419
  2. AVONEX [Suspect]
     Indication: MULTIPLE SCLEROSIS
     Dates: end: 20060518
  3. LISINOPRIL [Concomitant]
  4. TOPROL-XL [Concomitant]
  5. METFORMIN [Concomitant]
  6. ZANAFLEX [Concomitant]
  7. GLUCOTROL [Concomitant]
  8. AMANTADINE HCL [Concomitant]

REACTIONS (3)
  - ASTHENIA [None]
  - DIABETES MELLITUS NON-INSULIN-DEPENDENT [None]
  - HYPERTENSION [None]
